FAERS Safety Report 4865162-0 (Version None)
Quarter: 2005Q4

REPORT INFORMATION
  Report Type: 
  Country: None (occurrence: None)
  Receive Date: 20051223
  Receipt Date: 20051110
  Transmission Date: 20060501
  Serious: Yes (Hospitalization, Disabling)
  Sender: FDA-Public Use
  Company Number: CA-GLAXOSMITHKLINE-A0581725A

PATIENT
  Age: 63 Year
  Sex: Female
  Weight: 72 kg

DRUGS (4)
  1. TOSITUMOMAB [Suspect]
     Indication: NON-HODGKIN'S LYMPHOMA
     Dosage: 450MG SINGLE DOSE
     Route: 042
     Dates: start: 20040503
  2. TOSITUMOMAB [Suspect]
     Dosage: 450MG SINGLE DOSE
     Route: 042
     Dates: start: 20040513
  3. IODINE I 131 TOSITUMOMAB [Suspect]
     Indication: NON-HODGKIN'S LYMPHOMA
     Dosage: 5.58MCI SINGLE DOSE
     Route: 042
     Dates: start: 20040503
  4. IODINE I 131 TOSITUMOMAB [Suspect]
     Dosage: 70.71MCI SINGLE DOSE
     Route: 042
     Dates: start: 20050513

REACTIONS (4)
  - ANOREXIA [None]
  - DYSPHAGIA [None]
  - DYSPNOEA [None]
  - VENTRICULAR DYSFUNCTION [None]
